FAERS Safety Report 7980008-X (Version None)
Quarter: 2011Q4

REPORT INFORMATION
  Report Type: 
  Country: None (occurrence: None)
  Receive Date: 20111214
  Receipt Date: 20111205
  Transmission Date: 20120403
  Serious: Yes (Other)
  Sender: FDA-Public Use
  Company Number: PHHY2011SK106767

PATIENT
  Age: 41 Year
  Sex: Male

DRUGS (8)
  1. RASILEZ [Suspect]
     Dosage: 300 MG, UNK
     Dates: start: 20110901
  2. ALISKIREN/HCTZ [Suspect]
     Dosage: 1 DF, UNK
     Dates: start: 20100101
  3. URAPIDIL [Concomitant]
     Dosage: 60 MG, UNK
     Dates: start: 20090901
  4. TRANDOLAPRIL [Concomitant]
     Dosage: 4 MG, UNK
     Dates: start: 20090601
  5. URAPIDIL [Concomitant]
     Dosage: 30 MG, UNK
     Dates: start: 20090601
  6. RASILEZ [Suspect]
     Dosage: 150 MG, UNK
     Dates: start: 20090601
  7. VERAPAMIL [Concomitant]
     Dosage: 240 MG, UNK
     Dates: start: 20090601
  8. INDAPAMIDE [Concomitant]
     Dosage: 1.5 MG, UNK
     Dates: start: 20090601

REACTIONS (2)
  - ATRIOVENTRICULAR BLOCK FIRST DEGREE [None]
  - BRADYCARDIA [None]
